FAERS Safety Report 13277702 (Version 1)
Quarter: 2017Q1

REPORT INFORMATION
  Report Type: Spontaneous
  Country: US (occurrence: US)
  Receive Date: 20170228
  Receipt Date: 20170228
  Transmission Date: 20170428
  Serious: Yes (Death, Hospitalization)
  Sender: FDA-Public Use
  Company Number: US-LPDUSPRD-20170188

PATIENT
  Age: 46 Year
  Sex: Male

DRUGS (1)
  1. DEXAMETHASONE SODIUM PHOSPHATE INJECTION, USP (4901-25) [Suspect]
     Active Substance: DEXAMETHASONE SODIUM PHOSPHATE
     Dosage: 4 MG EVERY 6 HOURS
     Route: 065

REACTIONS (4)
  - Tumour lysis syndrome [Fatal]
  - Back pain [Unknown]
  - Respiratory failure [Fatal]
  - Multiple organ dysfunction syndrome [Fatal]
